FAERS Safety Report 4484417-5 (Version None)
Quarter: 2004Q4

REPORT INFORMATION
  Report Type: 
  Country: None (occurrence: None)
  Receive Date: 20041025
  Receipt Date: 20040922
  Transmission Date: 20050328
  Serious: Yes (Life-Threatening, Hospitalization, Disabling, Other)
  Sender: FDA-Public Use
  Company Number: PHRM2004FR02882

PATIENT
  Age: 56 Year
  Sex: Male
  Weight: 67 kg

DRUGS (3)
  1. NEORAL [Suspect]
     Indication: HEART TRANSPLANT
     Dosage: 50 MG, BID
     Route: 048
     Dates: start: 20040817, end: 20040826
  2. CELLCEPT [Concomitant]
     Indication: HEART TRANSPLANT
     Dosage: 1 MG, BID
  3. CORTANCYL [Concomitant]
     Indication: HEART TRANSPLANT
     Dosage: 35 MG DAILY

REACTIONS (11)
  - AGITATION [None]
  - ATRIAL FIBRILLATION [None]
  - BLINDNESS CORTICAL [None]
  - CONFUSIONAL STATE [None]
  - DELIRIUM [None]
  - ENCEPHALOPATHY [None]
  - GRAND MAL CONVULSION [None]
  - HEADACHE [None]
  - LUNG DISORDER [None]
  - PSEUDOMONAS INFECTION [None]
  - STREPTOCOCCAL INFECTION [None]
